FAERS Safety Report 12712526 (Version 1)
Quarter: 2016Q3

REPORT INFORMATION
  Report Type: Spontaneous
  Country: GB (occurrence: GB)
  Receive Date: 20160902
  Receipt Date: 20160902
  Transmission Date: 20161109
  Serious: Yes (Other)
  Sender: FDA-Public Use
  Company Number: GB-B. BRAUN MEDICAL INC.-1057012

PATIENT
  Age: 25 Year
  Sex: Male

DRUGS (7)
  1. SOLUVIT N [Suspect]
     Active Substance: VITAMINS
     Route: 042
  2. ADDAMEL [Suspect]
     Active Substance: ELECTROLYTES NOS\MINERALS\SORBITOL
     Route: 042
  3. WATER FOR INJECTION [Suspect]
     Active Substance: WATER
     Route: 042
  4. POTASSIUM CHLORIDE FOR INJECTION CONCENTRATE USP 0264-1940-20 [Suspect]
     Active Substance: POTASSIUM CHLORIDE
     Indication: PARENTERAL NUTRITION
     Route: 042
  5. AMINOVEN [Suspect]
     Active Substance: AMINO ACIDS
     Route: 042
  6. SMOFLIPID [Suspect]
     Active Substance: FISH OIL\MEDIUM-CHAIN TRIGLYCERIDES\OLIVE OIL\SOYBEAN OIL
     Route: 042
  7. VITALIPID [Suspect]
     Active Substance: ERGOCALCIFEROL\PHYTONADIONE\RETINOL\TOCOPHEROL
     Route: 042

REACTIONS (3)
  - Anaphylactic reaction [None]
  - Rash [None]
  - Dyspnoea [None]
